FAERS Safety Report 5927449-X (Version None)
Quarter: 2008Q4

REPORT INFORMATION
  Report Type: 
  Country: None (occurrence: None)
  Receive Date: 20081022
  Receipt Date: 20081022
  Transmission Date: 20090506
  Serious: Yes (Other)
  Sender: FDA-Public Use
  Company Number: None

PATIENT
  Age: 50 Year
  Sex: Female
  Weight: 73.9363 kg

DRUGS (6)
  1. SIMVASTATIN [Suspect]
     Indication: MIXED HYPERLIPIDAEMIA
     Dosage: MINIMAL
     Dates: start: 20050101
  2. LOVASTATIN [Suspect]
     Indication: MIXED HYPERLIPIDAEMIA
     Dosage: MINIMAL
     Dates: start: 20050101
  3. TRICOR [Suspect]
     Indication: MIXED HYPERLIPIDAEMIA
     Dosage: MINIMAL
     Dates: start: 20050101
  4. PRAVASTATIN [Suspect]
     Indication: MIXED HYPERLIPIDAEMIA
     Dosage: MINIMAL
     Dates: start: 20050101
  5. CORGARD [Concomitant]
  6. NIASPAN [Concomitant]

REACTIONS (4)
  - ARTHRALGIA [None]
  - HEADACHE [None]
  - MYALGIA [None]
  - PRODUCT QUALITY ISSUE [None]
